FAERS Safety Report 8012215 (Version 4)
Quarter: 2013Q4

REPORT INFORMATION
  Report Type: Spontaneous
  Country: US (occurrence: US)
  Receive Date: 20110628
  Receipt Date: 20131118
  Transmission Date: 20140711
  Serious: Yes (Hospitalization, Other)
  Sender: FDA-Public Use
  Company Number: US-BAYER-2011-052669

PATIENT
  Age: 19 Year
  Sex: Female
  Weight: 126 kg

DRUGS (8)
  1. YASMIN [Suspect]
     Indication: ACNE
     Dosage: UNK
     Dates: start: 2009, end: 2010
  2. YASMIN [Suspect]
     Indication: PREMENSTRUAL DYSPHORIC DISORDER
  3. YASMIN [Suspect]
     Indication: PREMENSTRUAL SYNDROME
  4. OCELLA [Suspect]
     Indication: ACNE
     Dosage: UNK
     Dates: start: 2009, end: 2010
  5. OCELLA [Suspect]
     Indication: PREMENSTRUAL DYSPHORIC DISORDER
  6. OCELLA [Suspect]
     Indication: PREMENSTRUAL SYNDROME
  7. TOPAMAX [Concomitant]
     Indication: HEADACHE
     Dosage: 50 MG, HS
     Route: 048
  8. HYDROCODONE W/APAP [Concomitant]
     Dosage: UNK
     Route: 048
     Dates: start: 20090627

REACTIONS (6)
  - Cholecystitis chronic [None]
  - Biliary dyskinesia [None]
  - Gallbladder non-functioning [None]
  - Abdominal pain upper [None]
  - Injury [None]
  - Pain [None]
